FAERS Safety Report 5256127-8 (Version None)
Quarter: 2007Q1

REPORT INFORMATION
  Report Type: 
  Country: None (occurrence: None)
  Receive Date: 20070306
  Receipt Date: 20070301
  Transmission Date: 20070707
  Serious: Yes (Death, Hospitalization)
  Sender: FDA-Public Use
  Company Number: PHFR2007GB00763

PATIENT
  Age: 58 Year
  Sex: Male
  Weight: 93.9 kg

DRUGS (1)
  1. GLEEVEC [Suspect]
     Indication: CHRONIC MYELOID LEUKAEMIA
     Dosage: 600MG/DAY
     Route: 048
     Dates: start: 20020101, end: 20061201

REACTIONS (4)
  - ARTERIOSCLEROSIS CORONARY ARTERY [None]
  - CIRCULATORY COLLAPSE [None]
  - LEFT VENTRICULAR FAILURE [None]
  - VOMITING [None]
